FAERS Safety Report 4546195-0 (Version None)
Quarter: 2005Q1

REPORT INFORMATION
  Report Type: 
  Country: None (occurrence: None)
  Receive Date: 20050103
  Receipt Date: 20041221
  Transmission Date: 20050727
  Serious: Yes (Other)
  Sender: FDA-Public Use
  Company Number: HQWYE288129DEC04

PATIENT
  Sex: Female

DRUGS (2)
  1. EFFEXOR XR [Suspect]
     Indication: AFFECTIVE DISORDER
     Dosage: 300 MG 1X PER 1 DAY, ORAL
     Route: 048
     Dates: start: 20030701
  2. LAMICTAL [Concomitant]

REACTIONS (4)
  - CYANOSIS NEONATAL [None]
  - DRUG EXPOSURE DURING PREGNANCY [None]
  - INDUCED LABOUR [None]
  - PROLONGED LABOUR [None]
